FAERS Safety Report 12657026 (Version 1)
Quarter: 2016Q3

REPORT INFORMATION
  Report Type: Spontaneous
  Country: US (occurrence: US)
  Receive Date: 20160816
  Receipt Date: 20160816
  Transmission Date: 20161109
  Serious: No
  Sender: FDA-Public Use
  Company Number: US-PERRIGO-16US016535

PATIENT
  Sex: Male
  Weight: 86.17 kg

DRUGS (2)
  1. RANITIDINE. [Concomitant]
     Active Substance: RANITIDINE
     Indication: URTICARIA
     Dosage: ONE TABLET, BID
     Route: 048
     Dates: start: 2015
  2. LORATADINE. [Suspect]
     Active Substance: LORATADINE
     Indication: URTICARIA
     Dosage: 40 MG, EVERY SIX HOURS
     Route: 048
     Dates: start: 2015

REACTIONS (3)
  - Overdose [Unknown]
  - No adverse event [Unknown]
  - Off label use [Unknown]

NARRATIVE: CASE EVENT DATE: 2015
